FAERS Safety Report 17339730 (Version 1)
Quarter: 2020Q1

REPORT INFORMATION
  Report Type: Spontaneous
  Country: US (occurrence: US)
  Receive Date: 20200129
  Receipt Date: 20200129
  Transmission Date: 20200409
  Serious: No
  Sender: FDA-Public Use
  Company Number: US-ALLERGAN-1900079US

PATIENT
  Age: 82 Year
  Sex: Female

DRUGS (9)
  1. BOTOX COSMETIC [Suspect]
     Active Substance: ONABOTULINUMTOXINA
     Indication: SKIN WRINKLING
  2. BOTOX COSMETIC [Suspect]
     Active Substance: ONABOTULINUMTOXINA
     Indication: SKIN WRINKLING
  3. BOTOX COSMETIC [Suspect]
     Active Substance: ONABOTULINUMTOXINA
     Indication: SKIN WRINKLING
     Dosage: UNK UNK, SINGLE
     Route: 030
     Dates: start: 2016, end: 2016
  4. LASIX [Concomitant]
     Active Substance: FUROSEMIDE
     Dosage: UNK
  5. MULTIVITAMIN [Concomitant]
     Active Substance: VITAMINS
     Dosage: UNK
  6. BOTOX COSMETIC [Suspect]
     Active Substance: ONABOTULINUMTOXINA
     Indication: SKIN WRINKLING
     Dosage: ACTUAL: 15U PER SIDE CROW FEET;15U GLAB; 10U BUNNY LINES;14U B/W UPPER LIP,DEPRESSOR ANGULARIS,CHIN
     Route: 030
     Dates: start: 20181129, end: 20181129
  7. BOTOX COSMETIC [Suspect]
     Active Substance: ONABOTULINUMTOXINA
     Indication: SKIN WRINKLING
  8. ZESTRIL [Concomitant]
     Active Substance: LISINOPRIL
     Dosage: UNK
  9. BOTOX COSMETIC [Suspect]
     Active Substance: ONABOTULINUMTOXINA
     Indication: SKIN WRINKLING

REACTIONS (17)
  - Fatigue [Recovering/Resolving]
  - Injection site pain [Recovering/Resolving]
  - Off label use [Unknown]
  - Photophobia [Recovering/Resolving]
  - Gait disturbance [Recovering/Resolving]
  - Eye discharge [Recovering/Resolving]
  - Dysphonia [Recovering/Resolving]
  - Visual impairment [Recovering/Resolving]
  - Dry eye [Recovering/Resolving]
  - Cough [Recovering/Resolving]
  - Speech disorder [Recovering/Resolving]
  - Influenza like illness [Recovering/Resolving]
  - Eye pruritus [Recovering/Resolving]
  - Pain in extremity [Recovering/Resolving]
  - Mastication disorder [Recovering/Resolving]
  - Dyspnoea [Recovering/Resolving]
  - Injection site swelling [Recovering/Resolving]

NARRATIVE: CASE EVENT DATE: 20181206
